FAERS Safety Report 18891100 (Version 3)
Quarter: 2021Q1

REPORT INFORMATION
  Report Type: Report from Study
  Country: None (occurrence: US)
  Receive Date: 20210215
  Receipt Date: 20210313
  Transmission Date: 20210420
  Serious: No
  Sender: FDA-Public Use
  Company Number: US-ABBVIE-21K-163-3773083-00

PATIENT
  Sex: Female
  Weight: 73.55 kg

DRUGS (2)
  1. COVID?19 VACCINE [Concomitant]
     Indication: COVID-19 IMMUNISATION
     Dosage: FIRST DOSE
     Route: 030
  2. HUMIRA [Suspect]
     Active Substance: ADALIMUMAB
     Indication: RHEUMATOID ARTHRITIS
     Route: 058
     Dates: start: 2015

REACTIONS (1)
  - Connective tissue disorder [Unknown]
